FAERS Safety Report 12721629 (Version 1)
Quarter: 2016Q3

REPORT INFORMATION
  Report Type: Other
  Country: US (occurrence: US)
  Receive Date: 20160907
  Receipt Date: 20160907
  Transmission Date: 20161109
  Serious: No
  Sender: FDA-Public Use
  Company Number: US-COL_22269_2016

PATIENT
  Age: 72 Year
  Sex: Male

DRUGS (1)
  1. COLGATE TOTAL WHITENING GEL [Suspect]
     Active Substance: SODIUM FLUORIDE\TRICLOSAN
     Indication: DENTAL DISORDER PROPHYLAXIS
     Dosage: COVERED WHOLE HEAD OF TOOTHBRUSH/ 2-3 TIMES A DAY/
     Route: 048
     Dates: start: 2015, end: 20160221

REACTIONS (2)
  - Oropharyngeal discomfort [Not Recovered/Not Resolved]
  - Dry throat [Not Recovered/Not Resolved]

NARRATIVE: CASE EVENT DATE: 201511
